FAERS Safety Report 15624222 (Version 1)
Quarter: 2018Q4

REPORT INFORMATION
  Report Type: Report from Study
  Country: None (occurrence: CA)
  Receive Date: 20181116
  Receipt Date: 20181116
  Transmission Date: 20190205
  Serious: Yes (Other)
  Sender: FDA-Public Use
  Company Number: CA-ABBVIE-18K-028-2555856-00

PATIENT
  Sex: Female

DRUGS (1)
  1. HUMIRA [Suspect]
     Active Substance: ADALIMUMAB
     Indication: PSORIATIC ARTHROPATHY
     Route: 058
     Dates: start: 20120919

REACTIONS (5)
  - Psoriatic arthropathy [Recovering/Resolving]
  - Peripheral swelling [Recovering/Resolving]
  - Joint range of motion decreased [Recovering/Resolving]
  - Renal impairment [Recovered/Resolved]
  - Back pain [Recovering/Resolving]

NARRATIVE: CASE EVENT DATE: 2018
